FAERS Safety Report 4782715-9 (Version None)
Quarter: 2005Q3

REPORT INFORMATION
  Report Type: 
  Country: None (occurrence: None)
  Receive Date: 20050929
  Receipt Date: 20050817
  Transmission Date: 20060218
  Serious: No
  Sender: FDA-Public Use
  Company Number: 414601

PATIENT
  Sex: Female

DRUGS (2)
  1. COREG [Suspect]
     Dosage: 50MG TWICE PER DAY
     Route: 048
  2. DIOVAN [Concomitant]

REACTIONS (1)
  - WEIGHT INCREASED [None]
